FAERS Safety Report 5978669-X (Version None)
Quarter: 2008Q4

REPORT INFORMATION
  Report Type: 
  Country: None (occurrence: None)
  Receive Date: 20081204
  Receipt Date: 20081126
  Transmission Date: 20090506
  Serious: Yes (Other)
  Sender: FDA-Public Use
  Company Number: US-ASTRAZENECA-2008UW26519

PATIENT
  Age: 62 Year
  Sex: Female
  Weight: 52.2 kg

DRUGS (7)
  1. CRESTOR [Suspect]
     Indication: BLOOD CHOLESTEROL INCREASED
     Route: 048
     Dates: start: 20081001, end: 20081101
  2. CRESTOR [Suspect]
     Route: 048
     Dates: start: 20081101
  3. SYMBICORT [Concomitant]
     Route: 055
  4. FLONASE [Concomitant]
  5. DICLOFENAC SODIUM [Concomitant]
  6. ASTELIN [Concomitant]
     Route: 045
  7. FOSAMAX [Concomitant]

REACTIONS (3)
  - BLOOD PRESSURE INCREASED [None]
  - HEADACHE [None]
  - UPPER RESPIRATORY TRACT INFECTION [None]
